FAERS Safety Report 10012817 (Version 2)
Quarter: 2014Q1

REPORT INFORMATION
  Report Type: Report from Study
  Country: CA (occurrence: CA)
  Receive Date: 20140314
  Receipt Date: 20140314
  Transmission Date: 20141002
  Serious: Yes (Hospitalization)
  Sender: FDA-Public Use
  Company Number: PHHO2010CA13818

PATIENT
  Age: 55 Year
  Sex: Female
  Weight: 61.8 kg

DRUGS (2)
  1. ALISKIREN [Suspect]
     Indication: CARDIAC FAILURE ACUTE
     Dosage: UNK
     Route: 048
     Dates: start: 20100902, end: 20100903
  2. LIPITOR /NET/ [Suspect]

REACTIONS (8)
  - Malignant glioma [Not Recovered/Not Resolved]
  - Brain mass [Not Recovered/Not Resolved]
  - Nausea [Not Recovered/Not Resolved]
  - Headache [Not Recovered/Not Resolved]
  - Dizziness [Not Recovered/Not Resolved]
  - Visual impairment [Not Recovered/Not Resolved]
  - Encephalomalacia [Unknown]
  - Infection [Unknown]
